FAERS Safety Report 7673656-8 (Version None)
Quarter: 2011Q3

REPORT INFORMATION
  Report Type: 
  Country: None (occurrence: None)
  Receive Date: 20110810
  Receipt Date: 20110726
  Transmission Date: 20111222
  Serious: Yes (Hospitalization)
  Sender: FDA-Public Use
  Company Number: US-US-EMD SERONO, INC.-7043358

PATIENT
  Sex: Female

DRUGS (4)
  1. REBIF [Suspect]
     Route: 058
     Dates: start: 20110204
  2. REBIF [Suspect]
     Route: 058
     Dates: start: 20110101, end: 20110501
  3. ADVIL LIQUI-GELS [Concomitant]
     Indication: PREMEDICATION
  4. REBIF [Suspect]
     Indication: PRODUCT USED FOR UNKNOWN INDICATION

REACTIONS (6)
  - OSTEONECROSIS [None]
  - DEPRESSION [None]
  - ARTHRITIS [None]
  - ROAD TRAFFIC ACCIDENT [None]
  - INJECTION SITE ERYTHEMA [None]
  - BURSITIS [None]
